FAERS Safety Report 8915574 (Version 1)
Quarter: 2012Q4

REPORT INFORMATION
  Report Type: 
  Country: US (occurrence: US)
  Receive Date: 20121119
  Receipt Date: 20121119
  Transmission Date: 20130627
  Serious: Yes (Hospitalization)
  Sender: FDA-Public Use
  Company Number: US-US-EMD SERONO, INC.-7173417

PATIENT
  Age: 40 Year
  Sex: Male

DRUGS (1)
  1. REBIF [Suspect]
     Indication: PRODUCT USED FOR UNKNOWN INDICATION
     Route: 058
     Dates: start: 20121029

REACTIONS (4)
  - Diplopia [Not Recovered/Not Resolved]
  - Balance disorder [Unknown]
  - Central nervous system lesion [Not Recovered/Not Resolved]
  - Gait disturbance [Unknown]
